FAERS Safety Report 4953910-0 (Version None)
Quarter: 2006Q1

REPORT INFORMATION
  Report Type: 
  Country: None (occurrence: None)
  Receive Date: 20060322
  Receipt Date: 20060303
  Transmission Date: 20060701
  Serious: Yes (Life-Threatening, Hospitalization)
  Sender: FDA-Public Use
  Company Number: DE200602001505

PATIENT
  Age: 36 Year
  Sex: Female

DRUGS (3)
  1. ZYPREXA [Suspect]
     Indication: PSYCHOTIC DISORDER
     Dosage: 20 MG
     Dates: start: 20060101
  2. AMITRIPTYLINE HCL [Concomitant]
  3. LEXONTANIL (BROMAZEPAM) [Concomitant]

REACTIONS (8)
  - COMA [None]
  - DEPRESSION [None]
  - HYPERSOMNIA [None]
  - INTENTIONAL OVERDOSE [None]
  - MULTIPLE DRUG OVERDOSE INTENTIONAL [None]
  - PSYCHOTIC DISORDER [None]
  - PULMONARY OEDEMA [None]
  - SUICIDE ATTEMPT [None]
